FAERS Safety Report 4686987-0 (Version None)
Quarter: 2005Q2

REPORT INFORMATION
  Report Type: 
  Country: None (occurrence: None)
  Receive Date: 20050609
  Receipt Date: 20030602
  Transmission Date: 20051028
  Serious: Yes (Death, Hospitalization, Other)
  Sender: FDA-Public Use
  Company Number: TN-MERCK-0306USA00108

PATIENT
  Age: 42 Year
  Sex: Male

DRUGS (6)
  1. HYZAAR [Suspect]
     Indication: HYPERTENSION
     Route: 048
     Dates: start: 20030313, end: 20030325
  2. HYZAAR [Suspect]
     Route: 048
     Dates: start: 20030326
  3. TENORMIN [Concomitant]
     Route: 065
     Dates: end: 20030313
  4. FLECAINE [Concomitant]
     Route: 048
     Dates: start: 20030313, end: 20030325
  5. FLECAINE [Concomitant]
     Route: 048
     Dates: start: 20030326
  6. PARACETAMOL TABLETS BP [Concomitant]
     Route: 065

REACTIONS (9)
  - ASTHENIA [None]
  - BRAIN OEDEMA [None]
  - COMA [None]
  - DRUG ADMINISTRATION ERROR [None]
  - GRAND MAL CONVULSION [None]
  - HEPATIC ENCEPHALOPATHY [None]
  - HEPATIC FAILURE [None]
  - HEPATITIS FULMINANT [None]
  - MULTI-ORGAN FAILURE [None]
